FAERS Safety Report 5386085-7 (Version None)
Quarter: 2007Q3

REPORT INFORMATION
  Report Type: 
  Country: None (occurrence: None)
  Receive Date: 20070710
  Receipt Date: 20070625
  Transmission Date: 20080115
  Serious: Yes (Disabling, Other)
  Sender: FDA-Public Use
  Company Number: 2006PV000039

PATIENT
  Age: 23 Year
  Sex: Male
  Weight: 78 kg

DRUGS (16)
  1. DEPOCYT [Suspect]
     Indication: BURKITT'S LYMPHOMA
     Dosage: 50 MG;X2;INTH
     Route: 037
     Dates: start: 20060721, end: 20061013
  2. DEPOCYT [Suspect]
  3. METHOTREXATE [Concomitant]
  4. SENDOXAN [Concomitant]
  5. HOLOXAN [Concomitant]
  6. ONCOVIN [Concomitant]
  7. DECADRON [Concomitant]
  8. RITUXAN [Concomitant]
  9. DOXORUBICIN HCL [Concomitant]
  10. ETOPOSIDE [Concomitant]
  11. PREDNISOLONE [Concomitant]
  12. BLEOMYCIN [Concomitant]
  13. MESNA [Concomitant]
  14. LEUCOVORIN CALCIUM [Concomitant]
  15. TENIPOSIDE [Concomitant]
  16. CYTARABINE [Concomitant]

REACTIONS (8)
  - BLINDNESS [None]
  - DIPLOPIA [None]
  - EPILEPSY [None]
  - NEUROTOXICITY [None]
  - PANCYTOPENIA [None]
  - PAPILLOEDEMA [None]
  - VISION BLURRED [None]
  - VITH NERVE PARALYSIS [None]
